FAERS Safety Report 9837955 (Version 1)
Quarter: 2013Q4

REPORT INFORMATION
  Report Type: Spontaneous
  Country: US (occurrence: None)
  Receive Date: 20131205
  Receipt Date: 20131205
  Transmission Date: 20140711
  Serious: Yes (Other)
  Sender: FDA-Public Use
  Company Number: 163-POMAL-13094489

PATIENT
  Age: 73 Year
  Sex: Female

DRUGS (1)
  1. POMALYST [Suspect]
     Indication: PLASMA CELL MYELOMA
     Dosage: 4MG, 21 IN 21 D PO
     Route: 048
     Dates: start: 20130917, end: 20130925

REACTIONS (4)
  - White blood cell count decreased [None]
  - Platelet count decreased [None]
  - Plasma cell myeloma [None]
  - Drug ineffective [None]
